FAERS Safety Report 16669196 (Version 1)
Quarter: 2019Q3

REPORT INFORMATION
  Report Type: Spontaneous
  Country: US (occurrence: US)
  Receive Date: 20190805
  Receipt Date: 20190805
  Transmission Date: 20191004
  Serious: No
  Sender: FDA-Public Use
  Company Number: US-ENDO PHARMACEUTICALS INC-2018-041216

PATIENT
  Sex: Female

DRUGS (2)
  1. VITAMIN D                          /00107901/ [Concomitant]
     Active Substance: ERGOCALCIFEROL
     Indication: HYPOVITAMINOSIS
  2. DELESTROGEN [Suspect]
     Active Substance: ESTRADIOL VALERATE
     Indication: HORMONE REPLACEMENT THERAPY
     Dosage: 1 ML, Q3W
     Route: 030
     Dates: start: 1972

REACTIONS (1)
  - Therapeutic product effect decreased [Unknown]
